FAERS Safety Report 5207748-X (Version None)
Quarter: 2006Q4

REPORT INFORMATION
  Report Type: 
  Country: None (occurrence: None)
  Receive Date: 20061030
  Receipt Date: 20060616
  Transmission Date: 20070319
  Serious: Yes (Death, Hospitalization)
  Sender: FDA-Public Use
  Company Number: 2006CT000662

PATIENT
  Age: 62 Year
  Sex: Male
  Weight: 90.3 kg

DRUGS (15)
  1. VENTAVIS [Suspect]
     Indication: PULMONARY HYPERTENSION
     Dosage: 5 UG; 6XD; INH
     Route: 055
     Dates: start: 20060608, end: 20060616
  2. PULMICORT [Concomitant]
  3. DILTIAZEM [Concomitant]
  4. POTASSIUM CHLORIDE [Concomitant]
  5. ADVAIR DISKUS 100/50 [Concomitant]
  6. DUONEB [Concomitant]
  7. LASIX [Concomitant]
  8. NIFEDIPINE [Concomitant]
  9. WARFARIN SODIUM [Concomitant]
  10. PREDNISONE [Concomitant]
  11. FLONASE [Concomitant]
  12. OMEPRAZOLE [Concomitant]
  13. MUCINEX [Concomitant]
  14. TRACLEER [Concomitant]
  15. CARDIZEM [Concomitant]

REACTIONS (4)
  - CHEST PAIN [None]
  - HYPOXIA [None]
  - MEMORY IMPAIRMENT [None]
  - SYNCOPE [None]
